FAERS Safety Report 13550305 (Version 1)
Quarter: 2017Q2

REPORT INFORMATION
  Report Type: Spontaneous
  Country: JP (occurrence: JP)
  Receive Date: 20170516
  Receipt Date: 20170516
  Transmission Date: 20170830
  Serious: Yes (Life-Threatening, Hospitalization, Other)
  Sender: FDA-Public Use
  Company Number: JP-MYLANLABS-2017M1029070

PATIENT

DRUGS (3)
  1. ETOPOSIDE. [Suspect]
     Active Substance: ETOPOSIDE
     Indication: RETROPERITONEAL NEOPLASM
     Dosage: PART OF BEP THERAPY
     Route: 065
  2. BLEOMYCIN [Suspect]
     Active Substance: BLEOMYCIN SULFATE
     Indication: RETROPERITONEAL NEOPLASM
     Dosage: PART OF BEP THERAPY
     Route: 065
  3. CISPLATIN. [Suspect]
     Active Substance: CISPLATIN
     Indication: RETROPERITONEAL NEOPLASM
     Dosage: PART OF BEP THERAPY
     Route: 065

REACTIONS (4)
  - Thrombosis [Recovered/Resolved]
  - Neutropenia [Unknown]
  - Cardio-respiratory arrest [Recovered/Resolved]
  - Acute myocardial infarction [Recovered/Resolved]
